FAERS Safety Report 16036622 (Version 2)
Quarter: 2019Q2

REPORT INFORMATION
  Report Type: Report from Study
  Country: None (occurrence: ES)
  Receive Date: 20190305
  Receipt Date: 20190528
  Transmission Date: 20190711
  Serious: Yes (Hospitalization, Other)
  Sender: FDA-Public Use
  Company Number: ES-ABBVIE-19S-144-2632117-00

PATIENT
  Age: 75 Year
  Sex: Female
  Weight: 78 kg

DRUGS (1)
  1. DUODOPA [Suspect]
     Active Substance: CARBIDOPA\LEVODOPA
     Indication: PARKINSON^S DISEASE
     Route: 050
     Dates: start: 20180802

REACTIONS (11)
  - Lip disorder [Unknown]
  - Polyneuropathy [Recovering/Resolving]
  - Motor dysfunction [Unknown]
  - Vitamin D deficiency [Recovering/Resolving]
  - Gait inability [Unknown]
  - Hip fracture [Recovering/Resolving]
  - Asthenia [Unknown]
  - Asthenia [Not Recovered/Not Resolved]
  - Paraesthesia [Unknown]
  - Sensory loss [Unknown]
  - Fall [Unknown]

NARRATIVE: CASE EVENT DATE: 201812
